FAERS Safety Report 18923328 (Version 1)
Quarter: 2021Q1

REPORT INFORMATION
  Report Type: Spontaneous
  Country: ES (occurrence: ES)
  Receive Date: 20210222
  Receipt Date: 20210222
  Transmission Date: 20210420
  Serious: Yes (Other)
  Sender: FDA-Public Use
  Company Number: ES-PFIZER INC-2021144304

PATIENT
  Age: 77 Year
  Sex: Male

DRUGS (5)
  1. FUROSEMIDE. [Concomitant]
     Active Substance: FUROSEMIDE
     Indication: AORTIC VALVE INCOMPETENCE
     Dosage: 80 MG
  2. PHENYTOIN SODIUM. [Suspect]
     Active Substance: PHENYTOIN SODIUM
     Indication: EPILEPSY
     Dosage: 300 MG, DAILY (300 MG/DAY)
  3. PHENYTOIN SODIUM. [Interacting]
     Active Substance: PHENYTOIN SODIUM
     Dosage: 200 MG, DAILY (200 MG/DAY)
  4. TRIAMTERENE. [Concomitant]
     Active Substance: TRIAMTERENE
     Indication: AORTIC VALVE INCOMPETENCE
     Dosage: 25 MG, 1X/DAY
  5. TEGAFUR/URACIL [Interacting]
     Active Substance: TEGAFUR\URACIL
     Dosage: UNK

REACTIONS (4)
  - Toxicity to various agents [Unknown]
  - Cerebellar syndrome [Unknown]
  - Cerebellar atrophy [Unknown]
  - Drug interaction [Unknown]
